FAERS Safety Report 7900222-9 (Version None)
Quarter: 2011Q4

REPORT INFORMATION
  Report Type: 
  Country: None (occurrence: None)
  Receive Date: 20111104
  Receipt Date: 20111020
  Transmission Date: 20120403
  Serious: Yes (Hospitalization)
  Sender: FDA-Public Use
  Company Number: 2011HGS-002660

PATIENT
  Age: 48 Year
  Sex: Female
  Weight: 148.7798 kg

DRUGS (12)
  1. VICTOZA [Suspect]
     Indication: DIABETES MELLITUS
     Dates: start: 20110930
  2. OXYBUTYNIN [Concomitant]
  3. WOMEN'S MULTIVITAMIN (MULTIVITAMINS) (ERGOCALCIFEROL, ASCORBIC ACID, F [Concomitant]
  4. BENLYSTA [Suspect]
     Indication: SYSTEMIC LUPUS ERYTHEMATOSUS
     Dosage: 10 MG/KG, 1 IN 2 WK, INTRAVENOUS
     Route: 042
     Dates: start: 20110930, end: 20111013
  5. OMEPRAZOLE [Concomitant]
  6. LISINOPRIL [Concomitant]
  7. PLAQUENIL [Concomitant]
  8. COLCHICINE [Concomitant]
  9. METHOTREXATE [Concomitant]
  10. AMITRIPTYLINE HCL [Concomitant]
  11. VITAMIN D [Concomitant]
  12. METFORMIN HCL [Concomitant]

REACTIONS (4)
  - NAUSEA [None]
  - CANDIDIASIS [None]
  - VOMITING [None]
  - DEHYDRATION [None]
